FAERS Safety Report 4317771-5 (Version None)
Quarter: 2004Q1

REPORT INFORMATION
  Report Type: 
  Country: None (occurrence: None)
  Receive Date: 20040315
  Receipt Date: 20040305
  Transmission Date: 20041129
  Serious: Yes (Hospitalization)
  Sender: FDA-Public Use
  Company Number: WAES 0403SWE00012

PATIENT
  Age: 74 Year
  Sex: Male

DRUGS (8)
  1. ACETAMINOPHEN [Concomitant]
  2. ASPIRIN [Concomitant]
  3. ENALAPRIL MALEATE [Concomitant]
  4. GLUCOSAMINE [Concomitant]
  5. METOPROLOL TARTRATE [Concomitant]
  6. NITROGLYCERIN [Concomitant]
  7. NITROGLYCERIN [Concomitant]
  8. VIOXX [Suspect]
     Route: 048
     Dates: start: 20011008, end: 20030711

REACTIONS (2)
  - ROAD TRAFFIC ACCIDENT [None]
  - VISION BLURRED [None]
